FAERS Safety Report 5728878-X (Version None)
Quarter: 2008Q2

REPORT INFORMATION
  Report Type: 
  Country: None (occurrence: None)
  Receive Date: 20080506
  Receipt Date: 20080430
  Transmission Date: 20081010
  Serious: Yes (Other)
  Sender: FDA-Public Use
  Company Number: US-ASTRAZENECA-2008UW08705

PATIENT
  Sex: Male

DRUGS (1)
  1. TOPROL-XL [Suspect]
     Route: 048

REACTIONS (3)
  - ATRIOVENTRICULAR BLOCK [None]
  - ELECTROCARDIOGRAM ABNORMAL [None]
  - HEART RATE DECREASED [None]
